FAERS Safety Report 18855963 (Version 1)
Quarter: 2021Q1

REPORT INFORMATION
  Report Type: Spontaneous
  Country: CN (occurrence: CN)
  Receive Date: 20210206
  Receipt Date: 20210206
  Transmission Date: 20210420
  Serious: Yes (Other)
  Sender: FDA-Public Use
  Company Number: CN-LUPIN PHARMACEUTICALS INC.-2021-01276

PATIENT
  Sex: Male
  Weight: .65 kg

DRUGS (18)
  1. METHYLPREDNISOLONE. [Suspect]
     Active Substance: METHYLPREDNISOLONE
     Indication: IMMUNOSUPPRESSANT DRUG THERAPY
     Dosage: 40 MILLIGRAM, QD (DURING 23 PLUS 4 AND 24+2 WEEKS OF GESTATION)
     Route: 064
  2. METHYLPREDNISOLONE. [Suspect]
     Active Substance: METHYLPREDNISOLONE
     Dosage: 500 MILLIGRAM, UNK (AT 24 PLUS  3 WEEKS OF GESTATION ON THE FIRST DAY)
     Route: 064
  3. TACROLIMUS. [Suspect]
     Active Substance: TACROLIMUS
     Indication: IMMUNOSUPPRESSANT DRUG THERAPY
     Dosage: 0.5 MILLIGRAM, QD (0N FIRST DAY)
     Route: 064
  4. IMMUNE GLOBULIN (IMMUNOGLOBULINS NOS) [Suspect]
     Active Substance: IMMUNE GLOBULIN NOS
     Indication: SYSTEMIC LUPUS ERYTHEMATOSUS
     Dosage: 20 GRAM, QD (AT 22+5 WEEKS OF GESTATION)
     Route: 064
  5. IMMUNE GLOBULIN (IMMUNOGLOBULINS NOS) [Suspect]
     Active Substance: IMMUNE GLOBULIN NOS
     Indication: IMMUNOSUPPRESSANT DRUG THERAPY
     Dosage: 20 GRAM, QD (ON THE DAY OF CAESAREAN SECTION)
     Route: 064
  6. METHYLPREDNISOLONE. [Suspect]
     Active Substance: METHYLPREDNISOLONE
     Indication: SYSTEMIC LUPUS ERYTHEMATOSUS
     Dosage: 500 MILLIGRAM, QD (AT 22 PLUS  5 WEEKS OF GESTATION)
     Route: 064
  7. METHYLPREDNISOLONE. [Suspect]
     Active Substance: METHYLPREDNISOLONE
     Dosage: 300 MILLIGRAM, BID (AT 24 PLUS  3 WEEKS OF GESTATION ON THE SECOND DAY)
     Route: 064
  8. TACROLIMUS. [Suspect]
     Active Substance: TACROLIMUS
     Dosage: 0.25 MILLIGRAM (FOR 2 DAYS AND THEN DISCONTINUED)
     Route: 064
  9. MYCOPHENOLATE MOFETIL. [Suspect]
     Active Substance: MYCOPHENOLATE MOFETIL
     Indication: SYSTEMIC LUPUS ERYTHEMATOSUS
     Dosage: 0.5 GRAM, QD (AS A MAINTENANCE IMMUNOSUPPRESSION   )
     Route: 064
  10. HYDROXYCHLOROQUINE [Suspect]
     Active Substance: HYDROXYCHLOROQUINE
     Indication: SYSTEMIC LUPUS ERYTHEMATOSUS
     Dosage: 200 MILLIGRAM, QD
     Route: 064
  11. TACROLIMUS. [Suspect]
     Active Substance: TACROLIMUS
     Indication: SYSTEMIC LUPUS ERYTHEMATOSUS
     Dosage: 2 MILLIGRAM (AS A MAINTENANCE IMMUNOSUPPRESSION)
     Route: 064
  12. HYDROXYCHLOROQUINE [Suspect]
     Active Substance: HYDROXYCHLOROQUINE
     Indication: IMMUNOSUPPRESSANT DRUG THERAPY
     Dosage: 0.2 GRAM, QD (MAINTAINED TILL LEAVING HOSPITAL)
     Route: 064
  13. LABETALOL [Suspect]
     Active Substance: LABETALOL\LABETALOL HYDROCHLORIDE
     Indication: BLOOD PRESSURE INCREASED
     Dosage: 100 MILLIGRAM, BID
     Route: 064
  14. AZATHIOPRINE. [Suspect]
     Active Substance: AZATHIOPRINE
     Indication: SYSTEMIC LUPUS ERYTHEMATOSUS
     Dosage: 75 MILLIGRAM, QD (DURING 23+4 AND 24+2 WEEKS OF GESTATION)
     Route: 064
  15. METHYLPREDNISOLONE. [Suspect]
     Active Substance: METHYLPREDNISOLONE
     Dosage: 80 MILLIGRAM, QD (ON THE DAY OF CAESAREAN SECTION)
     Route: 064
  16. METHYLPREDNISOLONE. [Suspect]
     Active Substance: METHYLPREDNISOLONE
     Dosage: 40 MILLIGRAM, QD (ON ADMISSION)
     Route: 064
  17. AZATHIOPRINE. [Suspect]
     Active Substance: AZATHIOPRINE
     Indication: IMMUNOSUPPRESSANT DRUG THERAPY
     Dosage: 75 MILLIGRAM, QD (DURING 24+ TO 28 WEEKS OF GESTATION)
     Route: 064
  18. MYCOPHENOLATE MOFETIL. [Suspect]
     Active Substance: MYCOPHENOLATE MOFETIL
     Indication: IMMUNOSUPPRESSANT DRUG THERAPY

REACTIONS (3)
  - Premature baby [Unknown]
  - Low birth weight baby [Unknown]
  - Foetal exposure during pregnancy [Unknown]
